FAERS Safety Report 7044697-9 (Version None)
Quarter: 2010Q4

REPORT INFORMATION
  Report Type: 
  Country: None (occurrence: None)
  Receive Date: 20101014
  Receipt Date: 20090501
  Transmission Date: 20110411
  Serious: Yes (Death)
  Sender: FDA-Public Use
  Company Number: US-BAXTER-2009BH008202

PATIENT
  Age: 55 Year
  Sex: Male

DRUGS (3)
  1. DOBUTAMINE HYDROCHLORIDE [Suspect]
     Indication: STRESS ECHOCARDIOGRAM
     Route: 042
  2. ATROPINE SULFATE [Suspect]
     Indication: STRESS ECHOCARDIOGRAM
     Route: 065
  3. ATROPINE SULFATE [Suspect]
     Route: 065

REACTIONS (2)
  - ANEURYSM RUPTURED [None]
  - HYPERTENSION [None]
